FAERS Safety Report 23035115 (Version 2)
Quarter: 2024Q1

REPORT INFORMATION
  Report Type: Spontaneous
  Country: CA (occurrence: None)
  Receive Date: 20231005
  Receipt Date: 20240322
  Transmission Date: 20240409
  Serious: Yes (Death, Life-Threatening, Hospitalization, Disabling, Other)
  Sender: FDA-Public Use
  Company Number: 2023A226289

PATIENT
  Age: 50 Year
  Sex: Female

DRUGS (459)
  1. QUETIAPINE FUMARATE [Suspect]
     Active Substance: QUETIAPINE FUMARATE
     Route: 048
  2. RAMIPRIL [Suspect]
     Active Substance: RAMIPRIL
     Route: 016
  3. RAMIPRIL [Suspect]
     Active Substance: RAMIPRIL
     Route: 048
  4. RAMIPRIL [Suspect]
     Active Substance: RAMIPRIL
     Route: 048
  5. RAMIPRIL [Suspect]
     Active Substance: RAMIPRIL
     Route: 048
  6. RAMIPRIL [Suspect]
     Active Substance: RAMIPRIL
     Route: 048
  7. RAMIPRIL [Suspect]
     Active Substance: RAMIPRIL
     Route: 048
  8. RAMIPRIL [Suspect]
     Active Substance: RAMIPRIL
     Route: 048
  9. RAMIPRIL [Suspect]
     Active Substance: RAMIPRIL
     Route: 048
  10. RAMIPRIL [Suspect]
     Active Substance: RAMIPRIL
  11. RAMIPRIL [Suspect]
     Active Substance: RAMIPRIL
     Route: 014
  12. RAMIPRIL [Suspect]
     Active Substance: RAMIPRIL
     Route: 058
  13. RAMIPRIL [Suspect]
     Active Substance: RAMIPRIL
     Route: 058
  14. ACETAMINOPHEN [Suspect]
     Active Substance: ACETAMINOPHEN
     Indication: Rheumatoid arthritis
     Dosage: 10.0MG UNKNOWN
  15. ACETAMINOPHEN\OXYCODONE HYDROCHLORIDE [Suspect]
     Active Substance: ACETAMINOPHEN\OXYCODONE HYDROCHLORIDE
     Indication: Product used for unknown indication
  16. ACTEMRA [Suspect]
     Active Substance: TOCILIZUMAB
     Indication: Rheumatoid arthritis
     Dosage: 752.8MG UNKNOWN
     Route: 042
  17. ACTEMRA [Suspect]
     Active Substance: TOCILIZUMAB
     Indication: Rheumatoid arthritis
     Dosage: UNKNOWN
     Route: 058
  18. ACTEMRA [Suspect]
     Active Substance: TOCILIZUMAB
     Indication: Rheumatoid arthritis
     Dosage: 3011.2MG UNKNOWN
     Route: 042
  19. ACTEMRA [Suspect]
     Active Substance: TOCILIZUMAB
     Indication: Rheumatoid arthritis
     Dosage: 2912.0MG UNKNOWN
     Route: 042
  20. ACTEMRA [Suspect]
     Active Substance: TOCILIZUMAB
     Indication: Rheumatoid arthritis
     Dosage: UNKNOWN
     Route: 042
  21. ACTEMRA [Suspect]
     Active Substance: TOCILIZUMAB
     Indication: Rheumatoid arthritis
     Dosage: 20.0MG UNKNOWN
     Route: 016
  22. ACTEMRA [Suspect]
     Active Substance: TOCILIZUMAB
     Indication: Rheumatoid arthritis
     Dosage: UNKNOWN
     Route: 016
  23. ACTEMRA [Suspect]
     Active Substance: TOCILIZUMAB
     Indication: Rheumatoid arthritis
     Dosage: 728.0MG UNKNOWN
     Route: 042
  24. ACTEMRA [Suspect]
     Active Substance: TOCILIZUMAB
     Indication: Rheumatoid arthritis
     Dosage: 20.0MG UNKNOWN
     Route: 048
  25. ALENDRONATE SODIUM [Suspect]
     Active Substance: ALENDRONATE SODIUM
  26. ALENDRONIC ACID [Suspect]
     Active Substance: ALENDRONIC ACID
     Indication: Rheumatoid arthritis
  27. PANTOPRAZOLE SODIUM ANHYDROUS [Suspect]
     Active Substance: PANTOPRAZOLE SODIUM ANHYDROUS
     Indication: Product used for unknown indication
     Route: 016
  28. DICLOFENAC SODIUM [Suspect]
     Active Substance: DICLOFENAC\DICLOFENAC SODIUM
     Indication: Product used for unknown indication
  29. PREDNISONE [Suspect]
     Active Substance: PREDNISONE
     Indication: Bursitis
  30. PREDNISONE [Suspect]
     Active Substance: PREDNISONE
     Indication: Synovitis
  31. PREDNISONE [Suspect]
     Active Substance: PREDNISONE
     Indication: Rheumatoid arthritis
  32. PREDNISONE [Suspect]
     Active Substance: PREDNISONE
     Indication: Psoriatic arthropathy
  33. PREDNISONE [Suspect]
     Active Substance: PREDNISONE
     Indication: Pemphigus
  34. PREDNISONE [Suspect]
     Active Substance: PREDNISONE
     Indication: Inflammation
  35. PREDNISONE [Suspect]
     Active Substance: PREDNISONE
     Indication: Bursitis
  36. PREDNISONE [Suspect]
     Active Substance: PREDNISONE
     Indication: Bursitis
  37. PREDNISONE [Suspect]
     Active Substance: PREDNISONE
     Indication: Synovitis
  38. PREDNISONE [Suspect]
     Active Substance: PREDNISONE
     Indication: Rheumatoid arthritis
  39. PREDNISONE [Suspect]
     Active Substance: PREDNISONE
     Indication: Psoriatic arthropathy
  40. PREDNISONE [Suspect]
     Active Substance: PREDNISONE
     Indication: Pemphigus
  41. PREDNISONE [Suspect]
     Active Substance: PREDNISONE
     Indication: Inflammation
  42. PREDNISONE [Suspect]
     Active Substance: PREDNISONE
     Indication: Bursitis
  43. PREDNISONE [Suspect]
     Active Substance: PREDNISONE
     Indication: Bursitis
  44. PREDNISONE [Suspect]
     Active Substance: PREDNISONE
     Indication: Synovitis
  45. PREDNISONE [Suspect]
     Active Substance: PREDNISONE
     Indication: Rheumatoid arthritis
  46. PREDNISONE [Suspect]
     Active Substance: PREDNISONE
     Indication: Psoriatic arthropathy
  47. PREDNISONE [Suspect]
     Active Substance: PREDNISONE
     Indication: Pemphigus
  48. PREDNISONE [Suspect]
     Active Substance: PREDNISONE
     Indication: Inflammation
  49. PREDNISONE [Suspect]
     Active Substance: PREDNISONE
     Indication: Bursitis
  50. PREDNISONE [Suspect]
     Active Substance: PREDNISONE
     Indication: Bursitis
  51. PREDNISONE [Suspect]
     Active Substance: PREDNISONE
     Indication: Synovitis
  52. PREDNISONE [Suspect]
     Active Substance: PREDNISONE
     Indication: Rheumatoid arthritis
  53. PREDNISONE [Suspect]
     Active Substance: PREDNISONE
     Indication: Psoriatic arthropathy
  54. PREDNISONE [Suspect]
     Active Substance: PREDNISONE
     Indication: Pemphigus
  55. PREDNISONE [Suspect]
     Active Substance: PREDNISONE
     Indication: Inflammation
  56. PREDNISONE [Suspect]
     Active Substance: PREDNISONE
     Indication: Bursitis
  57. PREDNISONE [Suspect]
     Active Substance: PREDNISONE
     Indication: Bursitis
  58. PREDNISONE [Suspect]
     Active Substance: PREDNISONE
     Indication: Synovitis
  59. PREDNISONE [Suspect]
     Active Substance: PREDNISONE
     Indication: Rheumatoid arthritis
  60. PREDNISONE [Suspect]
     Active Substance: PREDNISONE
     Indication: Psoriatic arthropathy
  61. PREDNISONE [Suspect]
     Active Substance: PREDNISONE
     Indication: Pemphigus
  62. PREDNISONE [Suspect]
     Active Substance: PREDNISONE
     Indication: Inflammation
  63. PREDNISONE [Suspect]
     Active Substance: PREDNISONE
     Indication: Bursitis
  64. ARAVA [Suspect]
     Active Substance: LEFLUNOMIDE
     Indication: Rheumatoid arthritis
     Route: 048
  65. ARAVA [Suspect]
     Active Substance: LEFLUNOMIDE
     Indication: Rheumatoid arthritis
     Route: 048
  66. ARAVA [Suspect]
     Active Substance: LEFLUNOMIDE
     Indication: Rheumatoid arthritis
  67. ARAVA [Suspect]
     Active Substance: LEFLUNOMIDE
     Indication: Rheumatoid arthritis
     Route: 048
  68. ARAVA [Suspect]
     Active Substance: LEFLUNOMIDE
     Indication: Rheumatoid arthritis
     Route: 005
  69. CALCIUM [Suspect]
     Active Substance: CALCIUM
     Indication: Product used for unknown indication
  70. CALCIUM CARBONATE [Suspect]
     Active Substance: CALCIUM CARBONATE
     Indication: Product used for unknown indication
     Route: 016
  71. CALCIUM GLUCONATE [Suspect]
     Active Substance: CALCIUM GLUCONATE
  72. CELEBREX [Suspect]
     Active Substance: CELECOXIB
     Indication: Rheumatoid arthritis
  73. CELEBREX [Suspect]
     Active Substance: CELECOXIB
     Indication: Arthritis
  74. CETIRIZINE [Suspect]
     Active Substance: CETIRIZINE HYDROCHLORIDE
     Indication: Rheumatoid arthritis
  75. CETIRIZINE [Suspect]
     Active Substance: CETIRIZINE HYDROCHLORIDE
     Indication: Off label use
  76. CETIRIZINE HYDROCHLORIDE\PSEUDOEPHEDRINE HYDROCHLORIDE [Suspect]
     Active Substance: CETIRIZINE HYDROCHLORIDE\PSEUDOEPHEDRINE HYDROCHLORIDE
  77. CETRIMIDE\CHLORHEXIDINE\HEXAMIDINE\LIDOCAINE [Suspect]
     Active Substance: CETRIMIDE\CHLORHEXIDINE\HEXAMIDINE\LIDOCAINE
     Indication: Product used for unknown indication
  78. CHLORHEXIDINE [Suspect]
     Active Substance: CHLORHEXIDINE\CHLORHEXIDINE GLUCONATE
     Indication: Product used for unknown indication
  79. CIMZIA [Suspect]
     Active Substance: CERTOLIZUMAB PEGOL
     Indication: Rheumatoid arthritis
     Dosage: 400.0MG UNKNOWN
     Route: 058
  80. CIMZIA [Suspect]
     Active Substance: CERTOLIZUMAB PEGOL
     Indication: Psoriatic arthropathy
     Dosage: 400.0MG UNKNOWN
     Route: 058
  81. CHOLECALCIFEROL [Suspect]
     Active Substance: CHOLECALCIFEROL
     Indication: Rheumatoid arthritis
  82. CORTISONE [Suspect]
     Active Substance: CORTISONE
     Indication: Rheumatoid arthritis
  83. HYDROCORTISONE ACETATE [Suspect]
     Active Substance: HYDROCORTISONE ACETATE
     Indication: Rheumatoid arthritis
  84. BENZOCAINE\HERBALS\HYDROCORTISONE ACETATE\PREDNISONE [Suspect]
     Active Substance: BENZOCAINE\HERBALS\HYDROCORTISONE ACETATE\PREDNISONE
     Indication: Rheumatoid arthritis
     Route: 048
  85. BENZOCAINE\HERBALS\HYDROCORTISONE ACETATE\PREDNISONE [Suspect]
     Active Substance: BENZOCAINE\HERBALS\HYDROCORTISONE ACETATE\PREDNISONE
     Indication: Rheumatoid arthritis
  86. BENZOCAINE\HERBALS\HYDROCORTISONE ACETATE\PREDNISONE [Suspect]
     Active Substance: BENZOCAINE\HERBALS\HYDROCORTISONE ACETATE\PREDNISONE
     Indication: Rheumatoid arthritis
  87. COSENTYX [Suspect]
     Active Substance: SECUKINUMAB
     Indication: Rheumatoid arthritis
  88. COSENTYX [Suspect]
     Active Substance: SECUKINUMAB
     Indication: Psoriatic arthropathy
  89. DESOXIMETASONE\NEOMYCIN SULFATE [Suspect]
     Active Substance: DESOXIMETASONE\NEOMYCIN SULFATE
     Indication: Rheumatoid arthritis
     Route: 048
  90. DESOXIMETASONE\NEOMYCIN SULFATE [Suspect]
     Active Substance: DESOXIMETASONE\NEOMYCIN SULFATE
     Indication: Off label use
     Route: 048
  91. DICLOFENAC SODIUM [Suspect]
     Active Substance: DICLOFENAC\DICLOFENAC SODIUM
     Indication: Rheumatoid arthritis
  92. DICLOFENAC SODIUM [Suspect]
     Active Substance: DICLOFENAC\DICLOFENAC SODIUM
     Indication: Inflammation
  93. DICLOFENAC SODIUM [Suspect]
     Active Substance: DICLOFENAC\DICLOFENAC SODIUM
     Indication: Osteoarthritis
  94. DOXYCYCLINE HYCLATE\LACTOBACILLUS ACIDOPHILUS [Suspect]
     Active Substance: DOXYCYCLINE HYCLATE\LACTOBACILLUS ACIDOPHILUS
     Indication: Product used for unknown indication
  95. ENBREL [Suspect]
     Active Substance: ETANERCEPT
     Indication: Rheumatoid arthritis
  96. ENBREL [Suspect]
     Active Substance: ETANERCEPT
     Indication: Psoriatic arthropathy
  97. FLUMETHASONE PIVALATE [Suspect]
     Active Substance: FLUMETHASONE PIVALATE
     Indication: Rheumatoid arthritis
  98. HYDROCORTISONE [Suspect]
     Active Substance: HYDROCORTISONE
  99. HYDROXYCHLOROQUINE [Suspect]
     Active Substance: HYDROXYCHLOROQUINE
     Indication: Rheumatoid arthritis
  100. HYDROXYCHLOROQUINE [Suspect]
     Active Substance: HYDROXYCHLOROQUINE
     Indication: Systemic lupus erythematosus
  101. IBUPROFEN [Suspect]
     Active Substance: IBUPROFEN
     Indication: Rheumatoid arthritis
  102. LEFLUNOMIDE [Suspect]
     Active Substance: LEFLUNOMIDE
     Indication: Rheumatoid arthritis
  103. LYRICA [Suspect]
     Active Substance: PREGABALIN
     Indication: Product used for unknown indication
  104. METHOTREXATE [Suspect]
     Active Substance: METHOTREXATE
     Indication: Rheumatoid arthritis
     Route: 014
  105. METHOTREXATE [Suspect]
     Active Substance: METHOTREXATE
     Indication: Rheumatoid arthritis
     Route: 048
  106. METHOTREXATE [Suspect]
     Active Substance: METHOTREXATE
     Indication: Rheumatoid arthritis
     Route: 048
  107. METHOTREXATE [Suspect]
     Active Substance: METHOTREXATE
     Indication: Rheumatoid arthritis
     Route: 048
  108. METHOTREXATE [Suspect]
     Active Substance: METHOTREXATE
     Indication: Rheumatoid arthritis
     Route: 048
  109. METHOTREXATE [Suspect]
     Active Substance: METHOTREXATE
     Indication: Rheumatoid arthritis
     Route: 048
  110. METHOTREXATE [Suspect]
     Active Substance: METHOTREXATE
     Indication: Rheumatoid arthritis
     Route: 048
  111. METHOTREXATE [Suspect]
     Active Substance: METHOTREXATE
     Indication: Rheumatoid arthritis
     Route: 048
  112. METHOTREXATE [Suspect]
     Active Substance: METHOTREXATE
     Indication: Rheumatoid arthritis
  113. METHOTREXATE [Suspect]
     Active Substance: METHOTREXATE
     Indication: Rheumatoid arthritis
     Route: 014
  114. METHOTREXATE [Suspect]
     Active Substance: METHOTREXATE
     Indication: Rheumatoid arthritis
     Route: 058
  115. METHOTREXATE [Suspect]
     Active Substance: METHOTREXATE
     Indication: Rheumatoid arthritis
     Route: 058
  116. NAPROXEN [Suspect]
     Active Substance: NAPROXEN
     Indication: Rheumatoid arthritis
     Route: 016
  117. NAPROXEN [Suspect]
     Active Substance: NAPROXEN
     Indication: Rheumatoid arthritis
     Route: 048
  118. NAPROXEN [Suspect]
     Active Substance: NAPROXEN
     Indication: Rheumatoid arthritis
     Route: 048
  119. NAPROXEN [Suspect]
     Active Substance: NAPROXEN
     Indication: Rheumatoid arthritis
     Route: 048
  120. NAPROXEN [Suspect]
     Active Substance: NAPROXEN
     Indication: Rheumatoid arthritis
     Route: 048
  121. NAPROXEN [Suspect]
     Active Substance: NAPROXEN
     Indication: Rheumatoid arthritis
     Route: 048
  122. NAPROXEN [Suspect]
     Active Substance: NAPROXEN
     Indication: Rheumatoid arthritis
     Route: 048
  123. NAPROXEN [Suspect]
     Active Substance: NAPROXEN
     Indication: Rheumatoid arthritis
     Route: 048
  124. NAPROXEN [Suspect]
     Active Substance: NAPROXEN
     Indication: Rheumatoid arthritis
  125. NAPROXEN [Suspect]
     Active Substance: NAPROXEN
     Indication: Rheumatoid arthritis
     Route: 014
  126. NAPROXEN [Suspect]
     Active Substance: NAPROXEN
     Indication: Rheumatoid arthritis
     Route: 058
  127. NAPROXEN [Suspect]
     Active Substance: NAPROXEN
     Indication: Rheumatoid arthritis
     Route: 058
  128. NAPROXEN SODIUM [Suspect]
     Active Substance: NAPROXEN\NAPROXEN SODIUM
     Indication: Product used for unknown indication
     Route: 016
  129. NAPROXEN SODIUM [Suspect]
     Active Substance: NAPROXEN\NAPROXEN SODIUM
     Indication: Product used for unknown indication
     Route: 048
  130. NAPROXEN SODIUM [Suspect]
     Active Substance: NAPROXEN\NAPROXEN SODIUM
     Indication: Product used for unknown indication
     Route: 048
  131. NAPROXEN SODIUM [Suspect]
     Active Substance: NAPROXEN\NAPROXEN SODIUM
     Indication: Product used for unknown indication
     Route: 048
  132. NAPROXEN SODIUM [Suspect]
     Active Substance: NAPROXEN\NAPROXEN SODIUM
     Indication: Product used for unknown indication
     Route: 048
  133. NAPROXEN SODIUM [Suspect]
     Active Substance: NAPROXEN\NAPROXEN SODIUM
     Indication: Product used for unknown indication
     Route: 048
  134. NAPROXEN SODIUM [Suspect]
     Active Substance: NAPROXEN\NAPROXEN SODIUM
     Indication: Product used for unknown indication
     Route: 048
  135. NAPROXEN SODIUM [Suspect]
     Active Substance: NAPROXEN\NAPROXEN SODIUM
     Indication: Product used for unknown indication
     Route: 048
  136. NAPROXEN SODIUM [Suspect]
     Active Substance: NAPROXEN\NAPROXEN SODIUM
     Indication: Product used for unknown indication
  137. NAPROXEN SODIUM [Suspect]
     Active Substance: NAPROXEN\NAPROXEN SODIUM
     Indication: Product used for unknown indication
     Route: 014
  138. NAPROXEN SODIUM [Suspect]
     Active Substance: NAPROXEN\NAPROXEN SODIUM
     Indication: Product used for unknown indication
     Route: 058
  139. NAPROXEN SODIUM [Suspect]
     Active Substance: NAPROXEN\NAPROXEN SODIUM
     Indication: Product used for unknown indication
     Route: 058
  140. ORENCIA [Suspect]
     Active Substance: ABATACEPT
     Indication: Rheumatoid arthritis
     Route: 016
  141. ORENCIA [Suspect]
     Active Substance: ABATACEPT
     Indication: Rheumatoid arthritis
     Route: 048
  142. ORENCIA [Suspect]
     Active Substance: ABATACEPT
     Indication: Rheumatoid arthritis
     Route: 048
  143. ORENCIA [Suspect]
     Active Substance: ABATACEPT
     Indication: Rheumatoid arthritis
     Route: 048
  144. ORENCIA [Suspect]
     Active Substance: ABATACEPT
     Indication: Rheumatoid arthritis
     Route: 048
  145. ORENCIA [Suspect]
     Active Substance: ABATACEPT
     Indication: Rheumatoid arthritis
     Route: 048
  146. ORENCIA [Suspect]
     Active Substance: ABATACEPT
     Indication: Rheumatoid arthritis
     Route: 048
  147. ORENCIA [Suspect]
     Active Substance: ABATACEPT
     Indication: Rheumatoid arthritis
     Route: 048
  148. ORENCIA [Suspect]
     Active Substance: ABATACEPT
     Indication: Rheumatoid arthritis
  149. ORENCIA [Suspect]
     Active Substance: ABATACEPT
     Indication: Rheumatoid arthritis
     Route: 014
  150. ORENCIA [Suspect]
     Active Substance: ABATACEPT
     Indication: Rheumatoid arthritis
     Route: 058
  151. ORENCIA [Suspect]
     Active Substance: ABATACEPT
     Indication: Rheumatoid arthritis
     Route: 058
  152. OTEZLA [Suspect]
     Active Substance: APREMILAST
     Indication: Product used for unknown indication
     Route: 016
  153. OTEZLA [Suspect]
     Active Substance: APREMILAST
     Indication: Product used for unknown indication
     Route: 048
  154. OTEZLA [Suspect]
     Active Substance: APREMILAST
     Indication: Product used for unknown indication
     Route: 048
  155. OTEZLA [Suspect]
     Active Substance: APREMILAST
     Indication: Product used for unknown indication
     Route: 048
  156. OTEZLA [Suspect]
     Active Substance: APREMILAST
     Indication: Product used for unknown indication
     Route: 048
  157. OTEZLA [Suspect]
     Active Substance: APREMILAST
     Indication: Product used for unknown indication
     Route: 048
  158. OTEZLA [Suspect]
     Active Substance: APREMILAST
     Indication: Product used for unknown indication
     Route: 048
  159. OTEZLA [Suspect]
     Active Substance: APREMILAST
     Indication: Product used for unknown indication
     Route: 048
  160. OTEZLA [Suspect]
     Active Substance: APREMILAST
     Indication: Product used for unknown indication
  161. OTEZLA [Suspect]
     Active Substance: APREMILAST
     Indication: Product used for unknown indication
     Route: 014
  162. OTEZLA [Suspect]
     Active Substance: APREMILAST
     Indication: Product used for unknown indication
     Route: 058
  163. OTEZLA [Suspect]
     Active Substance: APREMILAST
     Indication: Product used for unknown indication
     Route: 058
  164. OXYCODONE [Suspect]
     Active Substance: OXYCODONE\OXYCODONE HYDROCHLORIDE
     Indication: Product used for unknown indication
     Route: 016
  165. OXYCODONE [Suspect]
     Active Substance: OXYCODONE\OXYCODONE HYDROCHLORIDE
     Indication: Product used for unknown indication
     Route: 048
  166. OXYCODONE [Suspect]
     Active Substance: OXYCODONE\OXYCODONE HYDROCHLORIDE
     Indication: Product used for unknown indication
     Route: 048
  167. OXYCODONE [Suspect]
     Active Substance: OXYCODONE\OXYCODONE HYDROCHLORIDE
     Indication: Product used for unknown indication
     Route: 048
  168. OXYCODONE [Suspect]
     Active Substance: OXYCODONE\OXYCODONE HYDROCHLORIDE
     Indication: Product used for unknown indication
     Route: 048
  169. OXYCODONE [Suspect]
     Active Substance: OXYCODONE\OXYCODONE HYDROCHLORIDE
     Indication: Product used for unknown indication
     Route: 048
  170. OXYCODONE [Suspect]
     Active Substance: OXYCODONE\OXYCODONE HYDROCHLORIDE
     Indication: Product used for unknown indication
     Route: 048
  171. OXYCODONE [Suspect]
     Active Substance: OXYCODONE\OXYCODONE HYDROCHLORIDE
     Indication: Product used for unknown indication
     Route: 048
  172. OXYCODONE [Suspect]
     Active Substance: OXYCODONE\OXYCODONE HYDROCHLORIDE
     Indication: Product used for unknown indication
  173. OXYCODONE [Suspect]
     Active Substance: OXYCODONE\OXYCODONE HYDROCHLORIDE
     Indication: Product used for unknown indication
     Route: 014
  174. OXYCODONE [Suspect]
     Active Substance: OXYCODONE\OXYCODONE HYDROCHLORIDE
     Indication: Product used for unknown indication
     Route: 058
  175. OXYCODONE [Suspect]
     Active Substance: OXYCODONE\OXYCODONE HYDROCHLORIDE
     Indication: Product used for unknown indication
     Route: 058
  176. OXYCODONE TEREPHTHALATE [Suspect]
     Active Substance: OXYCODONE TEREPHTHALATE
     Indication: Product used for unknown indication
     Route: 016
  177. OXYCODONE TEREPHTHALATE [Suspect]
     Active Substance: OXYCODONE TEREPHTHALATE
     Indication: Product used for unknown indication
     Route: 048
  178. OXYCODONE TEREPHTHALATE [Suspect]
     Active Substance: OXYCODONE TEREPHTHALATE
     Indication: Product used for unknown indication
     Route: 048
  179. OXYCODONE TEREPHTHALATE [Suspect]
     Active Substance: OXYCODONE TEREPHTHALATE
     Indication: Product used for unknown indication
     Route: 048
  180. OXYCODONE TEREPHTHALATE [Suspect]
     Active Substance: OXYCODONE TEREPHTHALATE
     Indication: Product used for unknown indication
     Route: 048
  181. OXYCODONE TEREPHTHALATE [Suspect]
     Active Substance: OXYCODONE TEREPHTHALATE
     Indication: Product used for unknown indication
     Route: 048
  182. OXYCODONE TEREPHTHALATE [Suspect]
     Active Substance: OXYCODONE TEREPHTHALATE
     Indication: Product used for unknown indication
     Route: 048
  183. OXYCODONE TEREPHTHALATE [Suspect]
     Active Substance: OXYCODONE TEREPHTHALATE
     Indication: Product used for unknown indication
     Route: 048
  184. OXYCODONE TEREPHTHALATE [Suspect]
     Active Substance: OXYCODONE TEREPHTHALATE
     Indication: Product used for unknown indication
  185. OXYCODONE TEREPHTHALATE [Suspect]
     Active Substance: OXYCODONE TEREPHTHALATE
     Indication: Product used for unknown indication
     Route: 014
  186. OXYCODONE TEREPHTHALATE [Suspect]
     Active Substance: OXYCODONE TEREPHTHALATE
     Indication: Product used for unknown indication
     Route: 058
  187. OXYCODONE TEREPHTHALATE [Suspect]
     Active Substance: OXYCODONE TEREPHTHALATE
     Indication: Product used for unknown indication
     Route: 058
  188. PERIOGARD ALCOHOL FREE [Suspect]
     Active Substance: CHLORHEXIDINE GLUCONATE
     Indication: Product used for unknown indication
     Route: 016
  189. PERIOGARD ALCOHOL FREE [Suspect]
     Active Substance: CHLORHEXIDINE GLUCONATE
     Indication: Product used for unknown indication
     Route: 048
  190. PERIOGARD ALCOHOL FREE [Suspect]
     Active Substance: CHLORHEXIDINE GLUCONATE
     Indication: Product used for unknown indication
     Route: 048
  191. PERIOGARD ALCOHOL FREE [Suspect]
     Active Substance: CHLORHEXIDINE GLUCONATE
     Indication: Product used for unknown indication
     Route: 048
  192. PERIOGARD ALCOHOL FREE [Suspect]
     Active Substance: CHLORHEXIDINE GLUCONATE
     Indication: Product used for unknown indication
     Route: 048
  193. PERIOGARD ALCOHOL FREE [Suspect]
     Active Substance: CHLORHEXIDINE GLUCONATE
     Indication: Product used for unknown indication
     Route: 048
  194. PERIOGARD ALCOHOL FREE [Suspect]
     Active Substance: CHLORHEXIDINE GLUCONATE
     Indication: Product used for unknown indication
     Route: 048
  195. PERIOGARD ALCOHOL FREE [Suspect]
     Active Substance: CHLORHEXIDINE GLUCONATE
     Indication: Product used for unknown indication
     Route: 048
  196. PERIOGARD ALCOHOL FREE [Suspect]
     Active Substance: CHLORHEXIDINE GLUCONATE
     Indication: Product used for unknown indication
  197. PERIOGARD ALCOHOL FREE [Suspect]
     Active Substance: CHLORHEXIDINE GLUCONATE
     Indication: Product used for unknown indication
     Route: 014
  198. PERIOGARD ALCOHOL FREE [Suspect]
     Active Substance: CHLORHEXIDINE GLUCONATE
     Indication: Product used for unknown indication
     Route: 058
  199. PERIOGARD ALCOHOL FREE [Suspect]
     Active Substance: CHLORHEXIDINE GLUCONATE
     Indication: Product used for unknown indication
     Route: 058
  200. PHTHALYLSULFATHIAZOLE [Suspect]
     Active Substance: PHTHALYLSULFATHIAZOLE
     Indication: Product used for unknown indication
     Route: 016
  201. PHTHALYLSULFATHIAZOLE [Suspect]
     Active Substance: PHTHALYLSULFATHIAZOLE
     Indication: Product used for unknown indication
     Route: 048
  202. PHTHALYLSULFATHIAZOLE [Suspect]
     Active Substance: PHTHALYLSULFATHIAZOLE
     Indication: Product used for unknown indication
     Route: 048
  203. PHTHALYLSULFATHIAZOLE [Suspect]
     Active Substance: PHTHALYLSULFATHIAZOLE
     Indication: Product used for unknown indication
     Route: 048
  204. PHTHALYLSULFATHIAZOLE [Suspect]
     Active Substance: PHTHALYLSULFATHIAZOLE
     Indication: Product used for unknown indication
     Route: 048
  205. PHTHALYLSULFATHIAZOLE [Suspect]
     Active Substance: PHTHALYLSULFATHIAZOLE
     Indication: Product used for unknown indication
     Route: 048
  206. PHTHALYLSULFATHIAZOLE [Suspect]
     Active Substance: PHTHALYLSULFATHIAZOLE
     Indication: Product used for unknown indication
     Route: 048
  207. PHTHALYLSULFATHIAZOLE [Suspect]
     Active Substance: PHTHALYLSULFATHIAZOLE
     Indication: Product used for unknown indication
     Route: 048
  208. PHTHALYLSULFATHIAZOLE [Suspect]
     Active Substance: PHTHALYLSULFATHIAZOLE
     Indication: Product used for unknown indication
  209. PHTHALYLSULFATHIAZOLE [Suspect]
     Active Substance: PHTHALYLSULFATHIAZOLE
     Indication: Product used for unknown indication
     Route: 014
  210. PHTHALYLSULFATHIAZOLE [Suspect]
     Active Substance: PHTHALYLSULFATHIAZOLE
     Indication: Product used for unknown indication
     Route: 058
  211. PHTHALYLSULFATHIAZOLE [Suspect]
     Active Substance: PHTHALYLSULFATHIAZOLE
     Indication: Product used for unknown indication
     Route: 058
  212. PHTHALYLSULFATHIAZOLE [Suspect]
     Active Substance: PHTHALYLSULFATHIAZOLE
     Indication: Product used for unknown indication
     Route: 016
  213. PHTHALYLSULFATHIAZOLE [Suspect]
     Active Substance: PHTHALYLSULFATHIAZOLE
     Indication: Product used for unknown indication
     Route: 048
  214. PHTHALYLSULFATHIAZOLE [Suspect]
     Active Substance: PHTHALYLSULFATHIAZOLE
     Indication: Product used for unknown indication
     Route: 048
  215. PHTHALYLSULFATHIAZOLE [Suspect]
     Active Substance: PHTHALYLSULFATHIAZOLE
     Indication: Product used for unknown indication
     Route: 048
  216. PHTHALYLSULFATHIAZOLE [Suspect]
     Active Substance: PHTHALYLSULFATHIAZOLE
     Indication: Product used for unknown indication
     Route: 048
  217. PHTHALYLSULFATHIAZOLE [Suspect]
     Active Substance: PHTHALYLSULFATHIAZOLE
     Indication: Product used for unknown indication
     Route: 048
  218. PHTHALYLSULFATHIAZOLE [Suspect]
     Active Substance: PHTHALYLSULFATHIAZOLE
     Indication: Product used for unknown indication
     Route: 048
  219. PHTHALYLSULFATHIAZOLE [Suspect]
     Active Substance: PHTHALYLSULFATHIAZOLE
     Indication: Product used for unknown indication
     Route: 048
  220. PHTHALYLSULFATHIAZOLE [Suspect]
     Active Substance: PHTHALYLSULFATHIAZOLE
     Indication: Product used for unknown indication
  221. PHTHALYLSULFATHIAZOLE [Suspect]
     Active Substance: PHTHALYLSULFATHIAZOLE
     Indication: Product used for unknown indication
     Route: 014
  222. PHTHALYLSULFATHIAZOLE [Suspect]
     Active Substance: PHTHALYLSULFATHIAZOLE
     Indication: Product used for unknown indication
     Route: 058
  223. PHTHALYLSULFATHIAZOLE [Suspect]
     Active Substance: PHTHALYLSULFATHIAZOLE
     Indication: Product used for unknown indication
     Route: 058
  224. PHTHALYLSULFATHIAZOLE [Suspect]
     Active Substance: PHTHALYLSULFATHIAZOLE
     Indication: Product used for unknown indication
     Route: 016
  225. PHTHALYLSULFATHIAZOLE [Suspect]
     Active Substance: PHTHALYLSULFATHIAZOLE
     Indication: Product used for unknown indication
     Route: 048
  226. PHTHALYLSULFATHIAZOLE [Suspect]
     Active Substance: PHTHALYLSULFATHIAZOLE
     Indication: Product used for unknown indication
     Route: 048
  227. PHTHALYLSULFATHIAZOLE [Suspect]
     Active Substance: PHTHALYLSULFATHIAZOLE
     Indication: Product used for unknown indication
     Route: 048
  228. PHTHALYLSULFATHIAZOLE [Suspect]
     Active Substance: PHTHALYLSULFATHIAZOLE
     Indication: Product used for unknown indication
     Route: 048
  229. PHTHALYLSULFATHIAZOLE [Suspect]
     Active Substance: PHTHALYLSULFATHIAZOLE
     Indication: Product used for unknown indication
     Route: 048
  230. PHTHALYLSULFATHIAZOLE [Suspect]
     Active Substance: PHTHALYLSULFATHIAZOLE
     Indication: Product used for unknown indication
     Route: 048
  231. PHTHALYLSULFATHIAZOLE [Suspect]
     Active Substance: PHTHALYLSULFATHIAZOLE
     Indication: Product used for unknown indication
     Route: 048
  232. PHTHALYLSULFATHIAZOLE [Suspect]
     Active Substance: PHTHALYLSULFATHIAZOLE
     Indication: Product used for unknown indication
  233. PHTHALYLSULFATHIAZOLE [Suspect]
     Active Substance: PHTHALYLSULFATHIAZOLE
     Indication: Product used for unknown indication
     Route: 014
  234. PHTHALYLSULFATHIAZOLE [Suspect]
     Active Substance: PHTHALYLSULFATHIAZOLE
     Indication: Product used for unknown indication
     Route: 058
  235. PHTHALYLSULFATHIAZOLE [Suspect]
     Active Substance: PHTHALYLSULFATHIAZOLE
     Indication: Product used for unknown indication
     Route: 058
  236. PLAQUENIL [Suspect]
     Active Substance: HYDROXYCHLOROQUINE SULFATE
     Indication: Rheumatoid arthritis
     Route: 016
  237. PLAQUENIL [Suspect]
     Active Substance: HYDROXYCHLOROQUINE SULFATE
     Indication: Rheumatoid arthritis
     Route: 048
  238. PLAQUENIL [Suspect]
     Active Substance: HYDROXYCHLOROQUINE SULFATE
     Indication: Rheumatoid arthritis
     Route: 048
  239. PLAQUENIL [Suspect]
     Active Substance: HYDROXYCHLOROQUINE SULFATE
     Indication: Rheumatoid arthritis
     Route: 048
  240. PLAQUENIL [Suspect]
     Active Substance: HYDROXYCHLOROQUINE SULFATE
     Indication: Rheumatoid arthritis
     Route: 048
  241. PLAQUENIL [Suspect]
     Active Substance: HYDROXYCHLOROQUINE SULFATE
     Indication: Rheumatoid arthritis
     Route: 048
  242. PLAQUENIL [Suspect]
     Active Substance: HYDROXYCHLOROQUINE SULFATE
     Indication: Rheumatoid arthritis
     Route: 048
  243. PLAQUENIL [Suspect]
     Active Substance: HYDROXYCHLOROQUINE SULFATE
     Indication: Rheumatoid arthritis
     Route: 048
  244. PLAQUENIL [Suspect]
     Active Substance: HYDROXYCHLOROQUINE SULFATE
     Indication: Rheumatoid arthritis
  245. PLAQUENIL [Suspect]
     Active Substance: HYDROXYCHLOROQUINE SULFATE
     Indication: Rheumatoid arthritis
     Route: 014
  246. PLAQUENIL [Suspect]
     Active Substance: HYDROXYCHLOROQUINE SULFATE
     Indication: Rheumatoid arthritis
     Route: 058
  247. PLAQUENIL [Suspect]
     Active Substance: HYDROXYCHLOROQUINE SULFATE
     Indication: Rheumatoid arthritis
     Route: 058
  248. PREDNISONE [Suspect]
     Active Substance: PREDNISONE
     Indication: Rheumatoid arthritis
     Route: 016
  249. PREDNISONE [Suspect]
     Active Substance: PREDNISONE
     Indication: Condition aggravated
     Route: 016
  250. PREDNISONE [Suspect]
     Active Substance: PREDNISONE
     Indication: Rheumatoid arthritis
     Route: 048
  251. PREDNISONE [Suspect]
     Active Substance: PREDNISONE
     Indication: Condition aggravated
     Route: 048
  252. PREDNISONE [Suspect]
     Active Substance: PREDNISONE
     Indication: Rheumatoid arthritis
     Route: 048
  253. PREDNISONE [Suspect]
     Active Substance: PREDNISONE
     Indication: Condition aggravated
     Route: 048
  254. PREDNISONE [Suspect]
     Active Substance: PREDNISONE
     Indication: Rheumatoid arthritis
     Route: 048
  255. PREDNISONE [Suspect]
     Active Substance: PREDNISONE
     Indication: Condition aggravated
     Route: 048
  256. PREDNISONE [Suspect]
     Active Substance: PREDNISONE
     Indication: Rheumatoid arthritis
     Route: 048
  257. PREDNISONE [Suspect]
     Active Substance: PREDNISONE
     Indication: Condition aggravated
     Route: 048
  258. PREDNISONE [Suspect]
     Active Substance: PREDNISONE
     Indication: Rheumatoid arthritis
     Route: 048
  259. PREDNISONE [Suspect]
     Active Substance: PREDNISONE
     Indication: Condition aggravated
     Route: 048
  260. PREDNISONE [Suspect]
     Active Substance: PREDNISONE
     Indication: Rheumatoid arthritis
     Route: 048
  261. PREDNISONE [Suspect]
     Active Substance: PREDNISONE
     Indication: Condition aggravated
     Route: 048
  262. PREDNISONE [Suspect]
     Active Substance: PREDNISONE
     Indication: Rheumatoid arthritis
     Route: 048
  263. PREDNISONE [Suspect]
     Active Substance: PREDNISONE
     Indication: Condition aggravated
     Route: 048
  264. PREDNISONE [Suspect]
     Active Substance: PREDNISONE
     Indication: Rheumatoid arthritis
  265. PREDNISONE [Suspect]
     Active Substance: PREDNISONE
     Indication: Condition aggravated
  266. PREDNISONE [Suspect]
     Active Substance: PREDNISONE
     Indication: Rheumatoid arthritis
     Route: 014
  267. PREDNISONE [Suspect]
     Active Substance: PREDNISONE
     Indication: Condition aggravated
     Route: 014
  268. PREDNISONE [Suspect]
     Active Substance: PREDNISONE
     Indication: Rheumatoid arthritis
     Route: 058
  269. PREDNISONE [Suspect]
     Active Substance: PREDNISONE
     Indication: Condition aggravated
     Route: 058
  270. PREDNISONE [Suspect]
     Active Substance: PREDNISONE
     Indication: Rheumatoid arthritis
     Route: 058
  271. PREDNISONE [Suspect]
     Active Substance: PREDNISONE
     Indication: Condition aggravated
     Route: 058
  272. PSEUDOEPHEDRINE HYDROCHLORIDE [Suspect]
     Active Substance: PSEUDOEPHEDRINE HYDROCHLORIDE
     Route: 016
  273. PSEUDOEPHEDRINE HYDROCHLORIDE [Suspect]
     Active Substance: PSEUDOEPHEDRINE HYDROCHLORIDE
     Route: 048
  274. PSEUDOEPHEDRINE HYDROCHLORIDE [Suspect]
     Active Substance: PSEUDOEPHEDRINE HYDROCHLORIDE
     Route: 048
  275. PSEUDOEPHEDRINE HYDROCHLORIDE [Suspect]
     Active Substance: PSEUDOEPHEDRINE HYDROCHLORIDE
     Route: 048
  276. PSEUDOEPHEDRINE HYDROCHLORIDE [Suspect]
     Active Substance: PSEUDOEPHEDRINE HYDROCHLORIDE
     Route: 048
  277. PSEUDOEPHEDRINE HYDROCHLORIDE [Suspect]
     Active Substance: PSEUDOEPHEDRINE HYDROCHLORIDE
     Route: 048
  278. PSEUDOEPHEDRINE HYDROCHLORIDE [Suspect]
     Active Substance: PSEUDOEPHEDRINE HYDROCHLORIDE
     Route: 048
  279. PSEUDOEPHEDRINE HYDROCHLORIDE [Suspect]
     Active Substance: PSEUDOEPHEDRINE HYDROCHLORIDE
     Route: 048
  280. PSEUDOEPHEDRINE HYDROCHLORIDE [Suspect]
     Active Substance: PSEUDOEPHEDRINE HYDROCHLORIDE
  281. PSEUDOEPHEDRINE HYDROCHLORIDE [Suspect]
     Active Substance: PSEUDOEPHEDRINE HYDROCHLORIDE
     Route: 014
  282. PSEUDOEPHEDRINE HYDROCHLORIDE [Suspect]
     Active Substance: PSEUDOEPHEDRINE HYDROCHLORIDE
     Route: 058
  283. PSEUDOEPHEDRINE HYDROCHLORIDE [Suspect]
     Active Substance: PSEUDOEPHEDRINE HYDROCHLORIDE
     Route: 058
  284. CETIRIZINE HYDROCHLORIDE [Suspect]
     Active Substance: CETIRIZINE HYDROCHLORIDE
     Route: 016
  285. CETIRIZINE HYDROCHLORIDE [Suspect]
     Active Substance: CETIRIZINE HYDROCHLORIDE
     Route: 048
  286. CETIRIZINE HYDROCHLORIDE [Suspect]
     Active Substance: CETIRIZINE HYDROCHLORIDE
     Route: 048
  287. CETIRIZINE HYDROCHLORIDE [Suspect]
     Active Substance: CETIRIZINE HYDROCHLORIDE
     Route: 048
  288. CETIRIZINE HYDROCHLORIDE [Suspect]
     Active Substance: CETIRIZINE HYDROCHLORIDE
     Route: 048
  289. CETIRIZINE HYDROCHLORIDE [Suspect]
     Active Substance: CETIRIZINE HYDROCHLORIDE
     Route: 048
  290. CETIRIZINE HYDROCHLORIDE [Suspect]
     Active Substance: CETIRIZINE HYDROCHLORIDE
     Route: 048
  291. CETIRIZINE HYDROCHLORIDE [Suspect]
     Active Substance: CETIRIZINE HYDROCHLORIDE
     Route: 048
  292. CETIRIZINE HYDROCHLORIDE [Suspect]
     Active Substance: CETIRIZINE HYDROCHLORIDE
  293. CETIRIZINE HYDROCHLORIDE [Suspect]
     Active Substance: CETIRIZINE HYDROCHLORIDE
     Route: 014
  294. CETIRIZINE HYDROCHLORIDE [Suspect]
     Active Substance: CETIRIZINE HYDROCHLORIDE
     Route: 058
  295. CETIRIZINE HYDROCHLORIDE [Suspect]
     Active Substance: CETIRIZINE HYDROCHLORIDE
     Route: 058
  296. REMICADE [Suspect]
     Active Substance: INFLIXIMAB
     Route: 016
  297. REMICADE [Suspect]
     Active Substance: INFLIXIMAB
     Route: 048
  298. REMICADE [Suspect]
     Active Substance: INFLIXIMAB
     Route: 048
  299. REMICADE [Suspect]
     Active Substance: INFLIXIMAB
     Route: 048
  300. REMICADE [Suspect]
     Active Substance: INFLIXIMAB
     Route: 048
  301. REMICADE [Suspect]
     Active Substance: INFLIXIMAB
     Route: 048
  302. REMICADE [Suspect]
     Active Substance: INFLIXIMAB
     Route: 048
  303. REMICADE [Suspect]
     Active Substance: INFLIXIMAB
     Route: 048
  304. REMICADE [Suspect]
     Active Substance: INFLIXIMAB
  305. REMICADE [Suspect]
     Active Substance: INFLIXIMAB
     Route: 014
  306. REMICADE [Suspect]
     Active Substance: INFLIXIMAB
     Route: 058
  307. REMICADE [Suspect]
     Active Substance: INFLIXIMAB
     Route: 058
  308. BENDAMUSTINE [Suspect]
     Active Substance: BENDAMUSTINE
     Route: 016
  309. BORTEZOMIB [Suspect]
     Active Substance: BORTEZOMIB
     Route: 048
  310. BORTEZOMIB [Suspect]
     Active Substance: BORTEZOMIB
     Route: 048
  311. RITUXIMAB [Suspect]
     Active Substance: RITUXIMAB
     Route: 048
  312. BENDAMUSTINE [Suspect]
     Active Substance: BENDAMUSTINE
     Route: 048
  313. BORTEZOMIB [Suspect]
     Active Substance: BORTEZOMIB
     Route: 048
  314. RITUXIMAB [Suspect]
     Active Substance: RITUXIMAB
     Route: 048
  315. BENDAMUSTINE [Suspect]
     Active Substance: BENDAMUSTINE
     Route: 048
  316. BORTEZOMIB [Suspect]
     Active Substance: BORTEZOMIB
  317. RITUXIMAB [Suspect]
     Active Substance: RITUXIMAB
     Route: 014
  318. BENDAMUSTINE [Suspect]
     Active Substance: BENDAMUSTINE
     Route: 058
  319. BORTEZOMIB [Suspect]
     Active Substance: BORTEZOMIB
     Route: 058
  320. HERBALS\HOMEOPATHICS [Suspect]
     Active Substance: HERBALS\HOMEOPATHICS
     Route: 016
  321. HERBALS\HOMEOPATHICS [Suspect]
     Active Substance: HERBALS\HOMEOPATHICS
     Route: 048
  322. HERBALS\HOMEOPATHICS [Suspect]
     Active Substance: HERBALS\HOMEOPATHICS
     Route: 048
  323. HERBALS\HOMEOPATHICS [Suspect]
     Active Substance: HERBALS\HOMEOPATHICS
     Route: 048
  324. HERBALS\HOMEOPATHICS [Suspect]
     Active Substance: HERBALS\HOMEOPATHICS
     Route: 048
  325. HERBALS\HOMEOPATHICS [Suspect]
     Active Substance: HERBALS\HOMEOPATHICS
     Route: 048
  326. HERBALS\HOMEOPATHICS [Suspect]
     Active Substance: HERBALS\HOMEOPATHICS
     Route: 048
  327. HERBALS\HOMEOPATHICS [Suspect]
     Active Substance: HERBALS\HOMEOPATHICS
     Route: 048
  328. HERBALS\HOMEOPATHICS [Suspect]
     Active Substance: HERBALS\HOMEOPATHICS
  329. HERBALS\HOMEOPATHICS [Suspect]
     Active Substance: HERBALS\HOMEOPATHICS
     Route: 014
  330. HERBALS\HOMEOPATHICS [Suspect]
     Active Substance: HERBALS\HOMEOPATHICS
     Route: 058
  331. HERBALS\HOMEOPATHICS [Suspect]
     Active Substance: HERBALS\HOMEOPATHICS
     Route: 058
  332. SIMPONI [Suspect]
     Active Substance: GOLIMUMAB
     Route: 016
  333. SIMPONI [Suspect]
     Active Substance: GOLIMUMAB
     Route: 048
  334. SIMPONI [Suspect]
     Active Substance: GOLIMUMAB
     Route: 048
  335. SIMPONI [Suspect]
     Active Substance: GOLIMUMAB
     Route: 048
  336. SIMPONI [Suspect]
     Active Substance: GOLIMUMAB
     Route: 048
  337. SIMPONI [Suspect]
     Active Substance: GOLIMUMAB
     Route: 048
  338. SIMPONI [Suspect]
     Active Substance: GOLIMUMAB
     Route: 048
  339. SIMPONI [Suspect]
     Active Substance: GOLIMUMAB
     Route: 048
  340. SIMPONI [Suspect]
     Active Substance: GOLIMUMAB
  341. SIMPONI [Suspect]
     Active Substance: GOLIMUMAB
     Route: 014
  342. SIMPONI [Suspect]
     Active Substance: GOLIMUMAB
     Route: 058
  343. SIMPONI [Suspect]
     Active Substance: GOLIMUMAB
     Route: 058
  344. SOLU-MEDROL [Suspect]
     Active Substance: METHYLPREDNISOLONE SODIUM SUCCINATE
     Route: 016
  345. SOLU-MEDROL [Suspect]
     Active Substance: METHYLPREDNISOLONE SODIUM SUCCINATE
     Route: 048
  346. SOLU-MEDROL [Suspect]
     Active Substance: METHYLPREDNISOLONE SODIUM SUCCINATE
     Route: 048
  347. SOLU-MEDROL [Suspect]
     Active Substance: METHYLPREDNISOLONE SODIUM SUCCINATE
     Route: 048
  348. SOLU-MEDROL [Suspect]
     Active Substance: METHYLPREDNISOLONE SODIUM SUCCINATE
     Route: 048
  349. SOLU-MEDROL [Suspect]
     Active Substance: METHYLPREDNISOLONE SODIUM SUCCINATE
     Route: 048
  350. SOLU-MEDROL [Suspect]
     Active Substance: METHYLPREDNISOLONE SODIUM SUCCINATE
     Route: 048
  351. SOLU-MEDROL [Suspect]
     Active Substance: METHYLPREDNISOLONE SODIUM SUCCINATE
     Route: 048
  352. SOLU-MEDROL [Suspect]
     Active Substance: METHYLPREDNISOLONE SODIUM SUCCINATE
  353. SOLU-MEDROL [Suspect]
     Active Substance: METHYLPREDNISOLONE SODIUM SUCCINATE
     Route: 014
  354. SOLU-MEDROL [Suspect]
     Active Substance: METHYLPREDNISOLONE SODIUM SUCCINATE
     Route: 058
  355. SOLU-MEDROL [Suspect]
     Active Substance: METHYLPREDNISOLONE SODIUM SUCCINATE
     Route: 058
  356. STELARA [Suspect]
     Active Substance: USTEKINUMAB
     Route: 016
  357. STELARA [Suspect]
     Active Substance: USTEKINUMAB
     Route: 048
  358. STELARA [Suspect]
     Active Substance: USTEKINUMAB
     Route: 048
  359. STELARA [Suspect]
     Active Substance: USTEKINUMAB
     Route: 048
  360. STELARA [Suspect]
     Active Substance: USTEKINUMAB
     Route: 048
  361. STELARA [Suspect]
     Active Substance: USTEKINUMAB
     Route: 048
  362. STELARA [Suspect]
     Active Substance: USTEKINUMAB
     Route: 048
  363. STELARA [Suspect]
     Active Substance: USTEKINUMAB
     Route: 048
  364. STELARA [Suspect]
     Active Substance: USTEKINUMAB
  365. STELARA [Suspect]
     Active Substance: USTEKINUMAB
     Route: 014
  366. STELARA [Suspect]
     Active Substance: USTEKINUMAB
     Route: 058
  367. STELARA [Suspect]
     Active Substance: USTEKINUMAB
     Route: 058
  368. SULFASALAZINE [Suspect]
     Active Substance: SULFASALAZINE
     Route: 016
  369. SULFASALAZINE [Suspect]
     Active Substance: SULFASALAZINE
     Route: 048
  370. SULFASALAZINE [Suspect]
     Active Substance: SULFASALAZINE
     Route: 048
  371. SULFASALAZINE [Suspect]
     Active Substance: SULFASALAZINE
     Route: 048
  372. SULFASALAZINE [Suspect]
     Active Substance: SULFASALAZINE
     Route: 048
  373. SULFASALAZINE [Suspect]
     Active Substance: SULFASALAZINE
     Route: 048
  374. SULFASALAZINE [Suspect]
     Active Substance: SULFASALAZINE
     Route: 048
  375. SULFASALAZINE [Suspect]
     Active Substance: SULFASALAZINE
     Route: 048
  376. SULFASALAZINE [Suspect]
     Active Substance: SULFASALAZINE
  377. SULFASALAZINE [Suspect]
     Active Substance: SULFASALAZINE
     Route: 014
  378. SULFASALAZINE [Suspect]
     Active Substance: SULFASALAZINE
     Route: 058
  379. SULFASALAZINE [Suspect]
     Active Substance: SULFASALAZINE
     Route: 058
  380. PANTOPRAZOLE MAGNESIUM [Suspect]
     Active Substance: PANTOPRAZOLE MAGNESIUM
     Route: 016
  381. PANTOPRAZOLE MAGNESIUM [Suspect]
     Active Substance: PANTOPRAZOLE MAGNESIUM
     Route: 048
  382. PANTOPRAZOLE MAGNESIUM [Suspect]
     Active Substance: PANTOPRAZOLE MAGNESIUM
     Route: 048
  383. PANTOPRAZOLE MAGNESIUM [Suspect]
     Active Substance: PANTOPRAZOLE MAGNESIUM
     Route: 048
  384. PANTOPRAZOLE MAGNESIUM [Suspect]
     Active Substance: PANTOPRAZOLE MAGNESIUM
     Route: 048
  385. PANTOPRAZOLE MAGNESIUM [Suspect]
     Active Substance: PANTOPRAZOLE MAGNESIUM
     Route: 048
  386. PANTOPRAZOLE MAGNESIUM [Suspect]
     Active Substance: PANTOPRAZOLE MAGNESIUM
     Route: 048
  387. PANTOPRAZOLE MAGNESIUM [Suspect]
     Active Substance: PANTOPRAZOLE MAGNESIUM
     Route: 048
  388. PANTOPRAZOLE MAGNESIUM [Suspect]
     Active Substance: PANTOPRAZOLE MAGNESIUM
  389. PANTOPRAZOLE MAGNESIUM [Suspect]
     Active Substance: PANTOPRAZOLE MAGNESIUM
     Route: 014
  390. PANTOPRAZOLE MAGNESIUM [Suspect]
     Active Substance: PANTOPRAZOLE MAGNESIUM
     Route: 058
  391. PANTOPRAZOLE MAGNESIUM [Suspect]
     Active Substance: PANTOPRAZOLE MAGNESIUM
     Route: 058
  392. TOPICORT [Suspect]
     Active Substance: DESOXIMETASONE
     Route: 016
  393. TOPICORT [Suspect]
     Active Substance: DESOXIMETASONE
     Route: 048
  394. TOPICORT [Suspect]
     Active Substance: DESOXIMETASONE
     Route: 048
  395. TOPICORT [Suspect]
     Active Substance: DESOXIMETASONE
     Route: 048
  396. TOPICORT [Suspect]
     Active Substance: DESOXIMETASONE
     Route: 048
  397. TOPICORT [Suspect]
     Active Substance: DESOXIMETASONE
     Route: 048
  398. TOPICORT [Suspect]
     Active Substance: DESOXIMETASONE
     Route: 048
  399. TOPICORT [Suspect]
     Active Substance: DESOXIMETASONE
     Route: 048
  400. TOPICORT [Suspect]
     Active Substance: DESOXIMETASONE
  401. TOPICORT [Suspect]
     Active Substance: DESOXIMETASONE
     Route: 014
  402. TOPICORT [Suspect]
     Active Substance: DESOXIMETASONE
     Route: 058
  403. TOPICORT [Suspect]
     Active Substance: DESOXIMETASONE
     Route: 058
  404. VITAMIN C [Suspect]
     Active Substance: ASCORBIC ACID
     Route: 016
  405. VITAMIN C [Suspect]
     Active Substance: ASCORBIC ACID
     Route: 048
  406. VITAMIN C [Suspect]
     Active Substance: ASCORBIC ACID
     Route: 048
  407. VITAMIN C [Suspect]
     Active Substance: ASCORBIC ACID
     Route: 048
  408. VITAMIN C [Suspect]
     Active Substance: ASCORBIC ACID
     Route: 048
  409. VITAMIN C [Suspect]
     Active Substance: ASCORBIC ACID
     Route: 048
  410. VITAMIN C [Suspect]
     Active Substance: ASCORBIC ACID
     Route: 048
  411. VITAMIN C [Suspect]
     Active Substance: ASCORBIC ACID
     Route: 048
  412. VITAMIN C [Suspect]
     Active Substance: ASCORBIC ACID
  413. VITAMIN C [Suspect]
     Active Substance: ASCORBIC ACID
     Route: 014
  414. VITAMIN C [Suspect]
     Active Substance: ASCORBIC ACID
     Route: 058
  415. VITAMIN C [Suspect]
     Active Substance: ASCORBIC ACID
     Route: 058
  416. DICLOFENAC DIETHYLAMINE [Suspect]
     Active Substance: DICLOFENAC DIETHYLAMINE
     Route: 016
  417. DICLOFENAC DIETHYLAMINE [Suspect]
     Active Substance: DICLOFENAC DIETHYLAMINE
     Route: 048
  418. DICLOFENAC DIETHYLAMINE [Suspect]
     Active Substance: DICLOFENAC DIETHYLAMINE
     Route: 048
  419. DICLOFENAC DIETHYLAMINE [Suspect]
     Active Substance: DICLOFENAC DIETHYLAMINE
     Route: 048
  420. DICLOFENAC DIETHYLAMINE [Suspect]
     Active Substance: DICLOFENAC DIETHYLAMINE
     Route: 048
  421. DICLOFENAC DIETHYLAMINE [Suspect]
     Active Substance: DICLOFENAC DIETHYLAMINE
     Route: 048
  422. DICLOFENAC DIETHYLAMINE [Suspect]
     Active Substance: DICLOFENAC DIETHYLAMINE
     Route: 048
  423. DICLOFENAC DIETHYLAMINE [Suspect]
     Active Substance: DICLOFENAC DIETHYLAMINE
     Route: 048
  424. DICLOFENAC DIETHYLAMINE [Suspect]
     Active Substance: DICLOFENAC DIETHYLAMINE
  425. DICLOFENAC DIETHYLAMINE [Suspect]
     Active Substance: DICLOFENAC DIETHYLAMINE
     Route: 014
  426. DICLOFENAC DIETHYLAMINE [Suspect]
     Active Substance: DICLOFENAC DIETHYLAMINE
     Route: 058
  427. DICLOFENAC DIETHYLAMINE [Suspect]
     Active Substance: DICLOFENAC DIETHYLAMINE
     Route: 058
  428. PREDNISONE [Suspect]
     Active Substance: PREDNISONE
     Route: 016
  429. PREDNISONE [Suspect]
     Active Substance: PREDNISONE
     Route: 048
  430. PREDNISONE [Suspect]
     Active Substance: PREDNISONE
     Route: 048
  431. PREDNISONE [Suspect]
     Active Substance: PREDNISONE
     Route: 048
  432. PREDNISONE [Suspect]
     Active Substance: PREDNISONE
     Route: 048
  433. PREDNISONE [Suspect]
     Active Substance: PREDNISONE
     Route: 048
  434. PREDNISONE [Suspect]
     Active Substance: PREDNISONE
     Route: 048
  435. PREDNISONE [Suspect]
     Active Substance: PREDNISONE
     Route: 048
  436. PREDNISONE [Suspect]
     Active Substance: PREDNISONE
  437. PREDNISONE [Suspect]
     Active Substance: PREDNISONE
     Route: 014
  438. PREDNISONE [Suspect]
     Active Substance: PREDNISONE
     Route: 058
  439. PREDNISONE [Suspect]
     Active Substance: PREDNISONE
     Route: 058
  440. XELJANZ [Suspect]
     Active Substance: TOFACITINIB CITRATE
     Route: 016
  441. XELJANZ [Suspect]
     Active Substance: TOFACITINIB CITRATE
     Route: 048
  442. XELJANZ [Suspect]
     Active Substance: TOFACITINIB CITRATE
     Route: 048
  443. XELJANZ [Suspect]
     Active Substance: TOFACITINIB CITRATE
     Route: 048
  444. XELJANZ [Suspect]
     Active Substance: TOFACITINIB CITRATE
     Route: 048
  445. XELJANZ [Suspect]
     Active Substance: TOFACITINIB CITRATE
     Route: 048
  446. XELJANZ [Suspect]
     Active Substance: TOFACITINIB CITRATE
     Route: 048
  447. XELJANZ [Suspect]
     Active Substance: TOFACITINIB CITRATE
     Route: 048
  448. XELJANZ [Suspect]
     Active Substance: TOFACITINIB CITRATE
  449. XELJANZ [Suspect]
     Active Substance: TOFACITINIB CITRATE
     Route: 014
  450. XELJANZ [Suspect]
     Active Substance: TOFACITINIB CITRATE
     Route: 058
  451. XELJANZ [Suspect]
     Active Substance: TOFACITINIB CITRATE
     Route: 058
  452. FLUMETHASONE PIVALATE [Suspect]
     Active Substance: FLUMETHASONE PIVALATE
  453. FOLIC ACID [Suspect]
     Active Substance: FOLIC ACID
  454. HUMIRA [Suspect]
     Active Substance: ADALIMUMAB
  455. HYALURONIDASE [Suspect]
     Active Substance: HYALURONIDASE
  456. HYDROCORTISONE [Suspect]
     Active Substance: HYDROCORTISONE
  457. HYDROXYCHLOROQUINE SULFATE [Suspect]
     Active Substance: HYDROXYCHLOROQUINE SULFATE
  458. KEVZARA [Suspect]
     Active Substance: SARILUMAB
  459. INFLIXIMAB [Suspect]
     Active Substance: INFLIXIMAB

REACTIONS (121)
  - Abdominal discomfort [Fatal]
  - Abdominal pain upper [Fatal]
  - Alopecia [Fatal]
  - Anti-cyclic citrullinated peptide antibody positive [Fatal]
  - Anxiety [Fatal]
  - Arthralgia [Fatal]
  - Arthropathy [Fatal]
  - Asthenia [Fatal]
  - Asthma [Fatal]
  - Autoimmune disorder [Fatal]
  - Blister [Fatal]
  - Blood cholesterol increased [Fatal]
  - Bursitis [Fatal]
  - C-reactive protein [Fatal]
  - C-reactive protein abnormal [Fatal]
  - Chest pain [Fatal]
  - Colitis ulcerative [Fatal]
  - Condition aggravated [Fatal]
  - Confusional state [Fatal]
  - Contraindicated product administered [Fatal]
  - Contusion [Fatal]
  - Crohn^s disease [Fatal]
  - Decreased appetite [Fatal]
  - Deep vein thrombosis postoperative [Fatal]
  - Diarrhoea [Fatal]
  - Discomfort [Fatal]
  - Dizziness [Fatal]
  - Drug hypersensitivity [Fatal]
  - Drug ineffective [Fatal]
  - Drug intolerance [Fatal]
  - Dry mouth [Fatal]
  - Duodenal ulcer perforation [Fatal]
  - Dyspnoea [Fatal]
  - Facet joint syndrome [Fatal]
  - Fatigue [Fatal]
  - Feeling hot [Fatal]
  - Fibromyalgia [Fatal]
  - Folliculitis [Fatal]
  - Gait inability [Fatal]
  - Gastrointestinal disorder [Fatal]
  - General physical health deterioration [Fatal]
  - Glossodynia [Fatal]
  - Hand deformity [Fatal]
  - Headache [Fatal]
  - Helicobacter infection [Fatal]
  - Hepatic cirrhosis [Fatal]
  - Hepatic enzyme increased [Fatal]
  - Hip arthroplasty [Fatal]
  - Hypersensitivity [Fatal]
  - Hypertension [Fatal]
  - Hypoaesthesia [Fatal]
  - Ill-defined disorder [Fatal]
  - Impaired healing [Fatal]
  - Infection [Fatal]
  - Inflammation [Fatal]
  - Infusion related reaction [Fatal]
  - Injury [Fatal]
  - Intentional product use issue [Fatal]
  - Irritable bowel syndrome [Fatal]
  - Joint range of motion decreased [Fatal]
  - Joint swelling [Fatal]
  - Knee arthroplasty [Fatal]
  - Lip dry [Fatal]
  - Liver disorder [Fatal]
  - Liver injury [Fatal]
  - Lower limb fracture [Fatal]
  - Lower respiratory tract infection [Fatal]
  - Malaise [Fatal]
  - Maternal exposure during pregnancy [Fatal]
  - Mobility decreased [Fatal]
  - Muscle injury [Fatal]
  - Muscle spasms [Fatal]
  - Musculoskeletal pain [Fatal]
  - Musculoskeletal stiffness [Fatal]
  - Nasopharyngitis [Fatal]
  - Night sweats [Fatal]
  - Obesity [Fatal]
  - Oedema [Fatal]
  - Osteoarthritis [Fatal]
  - Pain [Fatal]
  - Paraesthesia [Fatal]
  - Pemphigus [Fatal]
  - Pericarditis [Fatal]
  - Peripheral swelling [Fatal]
  - Peripheral venous disease [Fatal]
  - Pregnancy [Fatal]
  - Prescribed overdose [Fatal]
  - Product use in unapproved indication [Fatal]
  - Product use issue [Fatal]
  - Pruritus [Fatal]
  - Psoriatic arthropathy [Fatal]
  - Pyrexia [Fatal]
  - Rash [Fatal]
  - Rectal haemorrhage [Fatal]
  - Red blood cell sedimentation rate increased [Fatal]
  - Respiratory disorder [Fatal]
  - Retinitis [Fatal]
  - Rheumatic fever [Fatal]
  - Rheumatoid arthritis [Fatal]
  - Rheumatoid factor positive [Fatal]
  - Road traffic accident [Fatal]
  - Sciatica [Fatal]
  - Sinusitis [Fatal]
  - Sleep disorder due to general medical condition, insomnia type [Fatal]
  - Stomatitis [Fatal]
  - Swelling [Fatal]
  - Swollen joint count increased [Fatal]
  - Synovitis [Fatal]
  - Systemic lupus erythematosus [Fatal]
  - Therapy non-responder [Fatal]
  - Treatment failure [Fatal]
  - Therapeutic product effect decreased [Fatal]
  - Type 2 diabetes mellitus [Fatal]
  - Urticaria [Fatal]
  - Vomiting [Fatal]
  - Weight increased [Fatal]
  - Wheezing [Fatal]
  - Wound [Fatal]
  - Lung disorder [Fatal]
  - Tender joint count [Fatal]
  - Off label use [Fatal]
